FAERS Safety Report 5571921-1 (Version None)
Quarter: 2007Q4

REPORT INFORMATION
  Report Type: 
  Country: None (occurrence: None)
  Receive Date: 20071221
  Receipt Date: 20071210
  Transmission Date: 20080405
  Serious: Yes (Other)
  Sender: FDA-Public Use
  Company Number: GB-RANBAXY-2007RR-12034

PATIENT

DRUGS (5)
  1. CO-AMOXICLAV 250/125 MG TABLETS [Suspect]
     Indication: BRONCHITIS
     Dosage: UNK
     Dates: start: 20070221, end: 20070228
  2. CO-AMILOZIDE [Concomitant]
     Indication: HYPOTENSION
     Dosage: UNK
     Route: 048
     Dates: start: 20010101
  3. FELODIPINE [Concomitant]
     Dosage: 5 G, UNK
     Route: 048
     Dates: start: 20020401
  4. OMEPRAZOLE [Concomitant]
     Indication: DYSPEPSIA
     Dosage: 10 G, UNK
     Route: 048
     Dates: start: 20031101
  5. TEMAZEPAM [Concomitant]
     Indication: INSOMNIA
     Dosage: 10 MG, UNK
     Route: 048
     Dates: start: 20020101

REACTIONS (7)
  - DYSPEPSIA [None]
  - HEPATOMEGALY [None]
  - JAUNDICE [None]
  - MALAISE [None]
  - NAUSEA [None]
  - VOMITING [None]
  - WEIGHT DECREASED [None]
